FAERS Safety Report 4279949-9 (Version None)
Quarter: 2004Q1

REPORT INFORMATION
  Report Type: 
  Country: None (occurrence: None)
  Receive Date: 20040127
  Receipt Date: 20040127
  Transmission Date: 20041129
  Serious: Yes (Other)
  Sender: FDA-Public Use
  Company Number: None

PATIENT
  Age: 54 Year
  Sex: Female
  Weight: 65.7716 kg

DRUGS (1)
  1. ARTHRICARE FOR WOMEN   MULTI-ACTION   DEL PHARMACEUTICALS, INC [Suspect]
     Indication: ARTHRITIS
     Dosage: CREAM  1 APPLICA   CUTANEOUS
     Route: 003
     Dates: start: 20040125, end: 20040125

REACTIONS (2)
  - BURNING SENSATION [None]
  - PAIN [None]
